FAERS Safety Report 9743297 (Version 2)
Quarter: 2015Q3

REPORT INFORMATION
  Report Type: Spontaneous
  Country: US (occurrence: US)
  Receive Date: 20131210
  Receipt Date: 20150805
  Transmission Date: 20151125
  Serious: No
  Sender: FDA-Public Use
  Company Number: US-GILEAD-2009-0025624

PATIENT
  Age: 84 Year
  Sex: Female
  Weight: 72.57 kg

DRUGS (9)
  1. LETAIRIS [Suspect]
     Active Substance: AMBRISENTAN
     Indication: PULMONARY ARTERIAL HYPERTENSION
     Route: 048
     Dates: start: 20081211
  2. VESICARE [Concomitant]
     Active Substance: SOLIFENACIN SUCCINATE
  3. CALTRATE [Concomitant]
     Active Substance: CALCIUM CARBONATE
  4. TOPROL XL [Concomitant]
     Active Substance: METOPROLOL SUCCINATE
  5. DOXEPIN [Concomitant]
     Active Substance: DOXEPIN
  6. OXYCODONE/PARACETAMOL [Concomitant]
  7. ASPIRIN. [Concomitant]
     Active Substance: ASPIRIN
  8. DIGITEK [Concomitant]
     Active Substance: DIGOXIN
  9. ALTACE [Concomitant]
     Active Substance: RAMIPRIL

REACTIONS (2)
  - Fluid retention [Unknown]
  - Peripheral swelling [Unknown]
